FAERS Safety Report 9209468 (Version 1)
Quarter: 2013Q1

REPORT INFORMATION
  Report Type: Spontaneous
  Country: US (occurrence: None)
  Receive Date: 20120730
  Receipt Date: 20120730
  Transmission Date: 20140127
  Serious: Yes (Other)
  Sender: FDA-Public Use
  Company Number: 324091USA

PATIENT
  Age: 30 Year
  Sex: Male

DRUGS (7)
  1. SURMONTIL [Suspect]
     Dates: start: 1980
  2. PAROXETINE HYDROCHLORIDE [Suspect]
     Dates: start: 1980
  3. MAPROTILINE HYDROCHLORIDE [Suspect]
     Dates: start: 1980
  4. FLUOXETINE HYDROCHLORIDE [Suspect]
     Dates: start: 1980
  5. NORTRIPTYLINE HYDROCHLORIDE [Suspect]
  6. GLIMEPIRIDE [Concomitant]
  7. PIOGLITAZONE [Concomitant]

REACTIONS (3)
  - Swollen tongue [None]
  - Mydriasis [None]
  - Sensory disturbance [None]
